FAERS Safety Report 10029783 (Version 1)
Quarter: 2014Q1

REPORT INFORMATION
  Report Type: Spontaneous
  Country: US (occurrence: None)
  Receive Date: 20140319
  Receipt Date: 20140319
  Transmission Date: 20141002
  Serious: Yes (Hospitalization)
  Sender: FDA-Public Use
  Company Number: 001683683A

PATIENT
  Age: 53 Year
  Sex: Female

DRUGS (2)
  1. MEANINGFUL BEAUTY ANTOXIDANT DAY CREME SPF 20 [Suspect]
     Dosage: DERMAL
     Dates: start: 20110926, end: 201308
  2. PRILOSEC [Concomitant]

REACTIONS (3)
  - Abdominal pain [None]
  - Coeliac disease [None]
  - Pancreatitis [None]
